FAERS Safety Report 21333673 (Version 1)
Quarter: 2022Q3

REPORT INFORMATION
  Report Type: Report from Study
  Country: HR (occurrence: HR)
  Receive Date: 20220914
  Receipt Date: 20220914
  Transmission Date: 20221027
  Serious: Yes (Hospitalization)
  Sender: FDA-Public Use
  Company Number: HR-002147023-NVSC2022HR202233

PATIENT

DRUGS (31)
  1. RUXOLITINIB [Suspect]
     Active Substance: RUXOLITINIB
     Indication: Myelofibrosis
     Dosage: 20 MG, BID (21 DAY CYCLE)
     Route: 048
     Dates: start: 20210823, end: 20210825
  2. RUXOLITINIB [Suspect]
     Active Substance: RUXOLITINIB
     Dosage: 15 MG, BID (21 DAY CYCLE)
     Route: 048
     Dates: start: 20210830, end: 20210919
  3. RUXOLITINIB [Suspect]
     Active Substance: RUXOLITINIB
     Dosage: 5 MG, BID (21 DAY CYCLE)
     Route: 048
     Dates: start: 20210920, end: 20211003
  4. RUXOLITINIB [Suspect]
     Active Substance: RUXOLITINIB
     Dosage: 10 MG, BID (21 DAY CYCLE)
     Route: 048
     Dates: start: 20211004, end: 20211016
  5. RUXOLITINIB [Suspect]
     Active Substance: RUXOLITINIB
     Dosage: 20 MG, BID (21 DAY CYCLE)
     Route: 048
     Dates: start: 20211029, end: 20211213
  6. RUXOLITINIB [Suspect]
     Active Substance: RUXOLITINIB
     Dosage: 15 MG, BID (21 DAY CYCLE)
     Route: 048
     Dates: start: 20211214, end: 20220301
  7. RUXOLITINIB [Suspect]
     Active Substance: RUXOLITINIB
     Dosage: 5 MG, BID (21 DAY CYCLE)
     Route: 048
     Dates: start: 20220302, end: 20220328
  8. RUXOLITINIB [Suspect]
     Active Substance: RUXOLITINIB
     Dosage: 10 MG, BID (21 DAY CYCLE)
     Route: 048
     Dates: start: 20220329, end: 20220610
  9. RUXOLITINIB [Suspect]
     Active Substance: RUXOLITINIB
     Dosage: 5 MG, BID (21 DAY CYCLE)
     Route: 048
     Dates: start: 20220611
  10. NAVITOCLAX [Suspect]
     Active Substance: NAVITOCLAX
     Indication: Myelofibrosis
     Dosage: 100 MG, QD (21 DAY CYCLE)
     Route: 048
     Dates: start: 20210823, end: 20210825
  11. NAVITOCLAX [Suspect]
     Active Substance: NAVITOCLAX
     Dosage: 50 MG, QD (21 DAY CYCLE)
     Route: 048
     Dates: start: 20210913, end: 20211003
  12. NAVITOCLAX [Suspect]
     Active Substance: NAVITOCLAX
     Dosage: 100 MG, QD (21 DAY CYCLE)
     Route: 048
     Dates: start: 20211004, end: 20211016
  13. NAVITOCLAX [Suspect]
     Active Substance: NAVITOCLAX
     Dosage: 50 MG, QD (21 DAY CYCLE)
     Route: 048
     Dates: start: 20220110, end: 20220206
  14. NAVITOCLAX [Suspect]
     Active Substance: NAVITOCLAX
     Dosage: 25 MG, QD (21 DAY CYCLE)
     Route: 048
     Dates: start: 20220511, end: 20220517
  15. CONTROLOC [Concomitant]
     Active Substance: PANTOPRAZOLE SODIUM
     Indication: Gastrointestinal disorder prophylaxis
     Dosage: 20 MG, QD
     Route: 048
     Dates: start: 2019
  16. FUROSEMIDE SODIUM [Concomitant]
     Active Substance: FUROSEMIDE SODIUM
     Indication: Hypertension
     Dosage: 40 MG, BID
     Route: 048
     Dates: start: 2019
  17. BISOPROLOL FUMARATE [Concomitant]
     Active Substance: BISOPROLOL FUMARATE
     Indication: Angina pectoris
     Dosage: 2.5 MG, QD
     Route: 048
     Dates: start: 2019
  18. RAMIPRIL [Concomitant]
     Active Substance: RAMIPRIL
     Indication: Hypertension
     Dosage: 2.5 MG, QD
     Route: 048
     Dates: start: 2019
  19. XANAX [Concomitant]
     Active Substance: ALPRAZOLAM
     Indication: Anxiety
     Dosage: 0.5 MG, PRN
     Route: 048
     Dates: start: 2019
  20. VITAMIN D3 [Concomitant]
     Active Substance: CHOLECALCIFEROL
     Indication: Osteoporosis prophylaxis
     Dosage: 4 DRP, QD
     Route: 048
     Dates: start: 2019
  21. AZILSARTAN KAMEDOXOMIL [Concomitant]
     Active Substance: AZILSARTAN KAMEDOXOMIL
     Indication: Haemochromatosis
     Dosage: 500 MG, QD
     Route: 048
     Dates: start: 2019
  22. AZILSARTAN KAMEDOXOMIL [Concomitant]
     Active Substance: AZILSARTAN KAMEDOXOMIL
     Indication: Transfusion
  23. ALLOPURINOL [Concomitant]
     Active Substance: ALLOPURINOL
     Indication: Hyperuricaemia
     Dosage: 100 MG, QD
     Route: 048
     Dates: start: 201907
  24. ASPIRIN [Concomitant]
     Active Substance: ASPIRIN
     Indication: Angina pectoris
     Dosage: 100 MG, QD
     Route: 048
     Dates: start: 2019
  25. OLODATEROL HYDROCHLORIDE\TIOTROPIUM BROMIDE MONOHYDRATE [Concomitant]
     Active Substance: OLODATEROL HYDROCHLORIDE\TIOTROPIUM BROMIDE MONOHYDRATE
     Indication: Chronic obstructive pulmonary disease
     Dosage: 2.5 UG, BID
     Route: 065
     Dates: start: 20211029
  26. THEOPHYLLINE [Concomitant]
     Active Substance: THEOPHYLLINE
     Indication: Chronic obstructive pulmonary disease
     Dosage: 2 DOSAGE FORM, QD
     Route: 048
     Dates: start: 20211029
  27. GLICLAZIDE [Concomitant]
     Active Substance: GLICLAZIDE
     Indication: Diabetes mellitus
     Dosage: 60 MG, QD
     Route: 048
     Dates: start: 20220310
  28. METFORMIN HYDROCHLORIDE [Concomitant]
     Active Substance: METFORMIN HYDROCHLORIDE
     Indication: Diabetes mellitus
     Dosage: 500 MG, QD
     Route: 048
     Dates: start: 20220310
  29. ACETAMINOPHEN [Concomitant]
     Active Substance: ACETAMINOPHEN
     Indication: Pyrexia
     Dosage: 1 G, PRN
     Route: 048
     Dates: start: 20220410
  30. CITRIC ACID MONOHYDRATE\POTASSIUM BICARBONATE\POTASSIUM CITRATE [Concomitant]
     Active Substance: CITRIC ACID MONOHYDRATE\POTASSIUM BICARBONATE\POTASSIUM CITRATE
     Indication: Hypertension
     Dosage: EFFERVETTE, AS REQUIRED
     Route: 048
     Dates: start: 20220412
  31. VALCYTE [Concomitant]
     Active Substance: VALGANCICLOVIR HYDROCHLORIDE
     Indication: Epstein-Barr virus infection
     Dosage: 450 MG, BID
     Route: 048
     Dates: start: 20220628

REACTIONS (2)
  - Diarrhoea [Not Recovered/Not Resolved]
  - Pneumonia fungal [Not Recovered/Not Resolved]

NARRATIVE: CASE EVENT DATE: 20220811
